FAERS Safety Report 15652145 (Version 1)
Quarter: 2018Q4

REPORT INFORMATION
  Report Type: Spontaneous
  Country: US (occurrence: US)
  Receive Date: 20181123
  Receipt Date: 20181123
  Transmission Date: 20190205
  Serious: Yes (Other)
  Sender: FDA-Public Use
  Company Number: US-GILEAD-2018-0376083

PATIENT
  Sex: Male

DRUGS (2)
  1. STRIBILD [Suspect]
     Active Substance: COBICISTAT\ELVITEGRAVIR\EMTRICITABINE\TENOFOVIR DISOPROXIL FUMARATE
     Indication: PRODUCT USED FOR UNKNOWN INDICATION
     Route: 048
  2. ATRIPLA [Suspect]
     Active Substance: EFAVIRENZ\EMTRICITABINE\TENOFOVIR DISOPROXIL FUMARATE
     Indication: PRODUCT USED FOR UNKNOWN INDICATION
     Route: 048

REACTIONS (12)
  - Osteoporosis [Unknown]
  - Blood creatinine increased [Unknown]
  - Emotional distress [Unknown]
  - Anhedonia [Unknown]
  - Ankle fracture [Unknown]
  - Somatic symptom disorder [Unknown]
  - Loss of personal independence in daily activities [Unknown]
  - Hip fracture [Unknown]
  - Economic problem [Unknown]
  - Wheelchair user [Unknown]
  - Anxiety [Unknown]
  - Pain [Unknown]
